FAERS Safety Report 19070125 (Version 1)
Quarter: 2021Q1

REPORT INFORMATION
  Report Type: Spontaneous
  Country: TR (occurrence: TR)
  Receive Date: 20210329
  Receipt Date: 20210329
  Transmission Date: 20210420
  Serious: Yes (Other)
  Sender: FDA-Public Use
  Company Number: TR-009507513-2103TUR006950

PATIENT
  Sex: Male
  Weight: 70 kg

DRUGS (3)
  1. KEPPRA [Concomitant]
     Active Substance: LEVETIRACETAM
  2. KYTRIL [Concomitant]
     Active Substance: GRANISETRON HYDROCHLORIDE
     Dosage: UNK
  3. TEMODAL [Suspect]
     Active Substance: TEMOZOLOMIDE
     Dosage: 350 MILLIGRAM
     Route: 048

REACTIONS (2)
  - Erectile dysfunction [Not Recovered/Not Resolved]
  - Herpes zoster [Unknown]

NARRATIVE: CASE EVENT DATE: 202102
